FAERS Safety Report 7903611-1 (Version None)
Quarter: 2012Q1

REPORT INFORMATION
  Report Type: 
  Country: None (occurrence: None)
  Receive Date: 20111109
  Receipt Date: 20111103
  Transmission Date: 20120608
  Serious: Yes (Hospitalization, Other)
  Sender: FDA-Public Use
  Company Number: US-B.I. PHARMACEUTICALS,INC./RIDGEFIELD-2011-EU-00126GD

PATIENT
  Age: 50 Year
  Sex: Female

DRUGS (4)
  1. IPRATROPIUM BROMIDE AND ALBUTEROL SULFATE [Suspect]
     Dosage: IPRATROPIUM BROMIDE 18 MCG AND ALBUTEROL 90 MCG 1 PUFF EVERY 8 HRS
     Route: 055
  2. KLONOPIN [Concomitant]
     Dosage: 1.5 MG
  3. VICODIN ES [Suspect]
     Indication: PAIN
     Dosage: HYDROCODONE BITARTRATE 7.5 MG AND ACETAMINOPHEN 750 MG EVERY 8 HOURS AS NEEDED
     Route: 048
  4. LOPRESSOR [Concomitant]
     Dosage: 25 MG

REACTIONS (6)
  - ASTHENIA [None]
  - DYSPNOEA [None]
  - HYPERCHLORAEMIA [None]
  - MALAISE [None]
  - METABOLIC ACIDOSIS [None]
  - PYROGLUTAMATE INCREASED [None]
